FAERS Safety Report 6158405-7 (Version None)
Quarter: 2009Q2

REPORT INFORMATION
  Report Type: 
  Country: None (occurrence: None)
  Receive Date: 20090417
  Receipt Date: 20090410
  Transmission Date: 20091009
  Serious: Yes (Hospitalization)
  Sender: FDA-Public Use
  Company Number: JP-BRISTOL-MYERS SQUIBB COMPANY-14589196

PATIENT
  Age: 37 Year
  Sex: Male

DRUGS (6)
  1. EFAVIRENZ [Suspect]
     Indication: HIV INFECTION
     Route: 048
     Dates: start: 20000901
  2. TRUVADA [Suspect]
     Indication: HIV INFECTION
     Dosage: DOSAGE FORM=TAB
     Route: 048
     Dates: start: 20060830
  3. RENIVACE [Concomitant]
  4. EPIVIR [Concomitant]
     Dates: start: 20000904, end: 20060829
  5. RECOMBINATE [Concomitant]
     Dates: end: 20070406
  6. ZERIT [Concomitant]
     Dates: start: 20000519, end: 20060829

REACTIONS (1)
  - VARICES OESOPHAGEAL [None]
